FAERS Safety Report 19642770 (Version 6)
Quarter: 2023Q1

REPORT INFORMATION
  Report Type: Spontaneous
  Country: US (occurrence: US)
  Receive Date: 20210730
  Receipt Date: 20230310
  Transmission Date: 20230417
  Serious: Yes (Hospitalization, Other)
  Sender: FDA-Public Use
  Company Number: US-PFIZER INC-202100941433

PATIENT
  Age: 77 Year
  Sex: Male
  Weight: 71.21 kg

DRUGS (24)
  1. VYNDAMAX [Suspect]
     Active Substance: TAFAMIDIS
     Indication: Amyloidosis
     Dosage: ONE PILL A DAY SPECIFICALLY IN THE MORNING
     Dates: start: 20190826
  2. VYNDAMAX [Suspect]
     Active Substance: TAFAMIDIS
     Indication: Amyloidosis senile
     Dosage: ONE PILL A DAY SPECIFICALLY IN THE MORNING
     Route: 048
     Dates: start: 20221006
  3. VYNDAMAX [Suspect]
     Active Substance: TAFAMIDIS
     Dosage: 61 MG, 1X/DAY
  4. ACETAMINOPHEN [Concomitant]
     Active Substance: ACETAMINOPHEN
     Dosage: TAKE 1 TABLET EVERY 4 TO 6 HOURS AS NEEDED
     Route: 048
     Dates: start: 20210816
  5. ATORVASTATIN CALCIUM [Concomitant]
     Active Substance: ATORVASTATIN CALCIUM
     Indication: Blood cholesterol abnormal
     Dosage: TAKE 1 TABLET AT BEDTIME
     Route: 048
     Dates: start: 20220330
  6. BIOTIN [Concomitant]
     Active Substance: BIOTIN
     Indication: Nail disorder
     Dosage: 5000 UG
     Route: 048
     Dates: start: 20161010
  7. CHOLECALCIFEROL [Concomitant]
     Active Substance: CHOLECALCIFEROL
     Dosage: 1000 IU
     Dates: start: 20210816
  8. FINASTERIDE [Concomitant]
     Active Substance: FINASTERIDE
     Indication: Prostatic disorder
     Dosage: TAKE 1 TABLET BY MOUTH ONCE DAILY AS DIRECTED
     Route: 048
     Dates: start: 20140113
  9. FLUOROURACIL [Concomitant]
     Active Substance: FLUOROURACIL
     Dosage: APPLY TO THE FACE TWICE A DAY FOR 6 DAYS
     Dates: start: 20191118
  10. CALCIPOTRIENE [Concomitant]
     Active Substance: CALCIPOTRIENE
     Dosage: APPLY TO THE FACE TWICE A DAY FOR 6 DAYS
  11. FLUOXETINE HYDROCHLORIDE [Concomitant]
     Active Substance: FLUOXETINE HYDROCHLORIDE
     Indication: Depression
     Dosage: TAKE 2 CAPSULES EVERYDAY
     Route: 048
     Dates: start: 20150804
  12. FLUTICASONE PROPIONATE [Concomitant]
     Active Substance: FLUTICASONE PROPIONATE
     Dosage: USE 2 SPRAYS IN EACH NOSTRILS ONCE DAILY
     Route: 045
     Dates: start: 20190313
  13. KLOR-CON M10 [Concomitant]
     Active Substance: POTASSIUM CHLORIDE
     Indication: Blood potassium abnormal
     Dosage: TAKE 4 TABLET TWICE DAILY
     Route: 048
     Dates: start: 20190425
  14. LISINOPRIL [Concomitant]
     Active Substance: LISINOPRIL
     Indication: Hypertension
     Dosage: 2.5 MG
     Route: 048
     Dates: start: 20220622, end: 20221206
  15. MELATONIN [Concomitant]
     Active Substance: MELATONIN
     Dosage: TAKE 1 TABLET BEDTIME
     Route: 048
     Dates: start: 20161205
  16. MODAFINIL [Concomitant]
     Active Substance: MODAFINIL
     Dosage: TAKE ONE TABLET BY MOUTH ONCE DAILY
     Route: 048
     Dates: start: 20200616
  17. NALOXONE HCL [Concomitant]
     Active Substance: NALOXONE HYDROCHLORIDE
     Dosage: AS NEEDED
     Dates: start: 20210816
  18. OMEPRAZOLE [Concomitant]
     Active Substance: OMEPRAZOLE
     Dosage: TAKE 1 CAPSULE EVERY DAY
     Route: 048
     Dates: start: 20150805
  19. PRIMIDONE [Concomitant]
     Active Substance: PRIMIDONE
     Indication: Tremor
     Dosage: TAKE 1 TABLET TWICE DAILY AS NEEDED
     Route: 048
     Dates: start: 20180110
  20. SPIRONOLACTONE [Concomitant]
     Active Substance: SPIRONOLACTONE
     Dosage: TAKE 1 TABLET BY MOUTH DAILY
     Route: 048
     Dates: start: 20150620
  21. TORSEMIDE [Concomitant]
     Active Substance: TORSEMIDE
     Dosage: TAKE 4 TABLETS DAILY
     Route: 048
     Dates: start: 20180808
  22. TORSEMIDE [Concomitant]
     Active Substance: TORSEMIDE
     Dosage: CUT TO 40MG NOT 80
     Dates: start: 20221003
  23. FARXIGA [Concomitant]
     Active Substance: DAPAGLIFLOZIN PROPANEDIOL
     Dosage: 10 MG
     Dates: start: 20220929
  24. DOXYCYCLINE [Concomitant]
     Active Substance: DOXYCYCLINE
     Dosage: 10 MG

REACTIONS (9)
  - Fall [Unknown]
  - Head injury [Unknown]
  - COVID-19 [Recovered/Resolved]
  - Brain injury [Unknown]
  - Skin discomfort [Unknown]
  - Phantom limb syndrome [Unknown]
  - Condition aggravated [Unknown]
  - Feeling abnormal [Unknown]
  - Dyskinesia [Unknown]

NARRATIVE: CASE EVENT DATE: 20201114
